FAERS Safety Report 6529537-6 (Version None)
Quarter: 2010Q1

REPORT INFORMATION
  Report Type: 
  Country: None (occurrence: None)
  Receive Date: 20100107
  Receipt Date: 20091231
  Transmission Date: 20100710
  Serious: Yes (Hospitalization)
  Sender: FDA-Public Use
  Company Number: IT-JNJFOC-20100100562

PATIENT
  Age: 58 Year
  Sex: Female

DRUGS (10)
  1. REMICADE [Suspect]
     Indication: RHEUMATOID ARTHRITIS
     Route: 042
  2. METHOTREXATE [Suspect]
     Indication: RHEUMATOID ARTHRITIS
     Route: 030
  3. HUMIRA [Suspect]
     Indication: RHEUMATOID ARTHRITIS
     Route: 058
  4. CYCLOPHOSPHAMIDE [Suspect]
     Indication: DRUG USE FOR UNKNOWN INDICATION
     Route: 042
  5. FORTRADOL [Concomitant]
     Route: 048
  6. PANTOPRAZOLE [Concomitant]
     Route: 048
  7. MEDROL [Concomitant]
     Route: 048
  8. BONIVA [Concomitant]
     Route: 048
  9. DIDROGYL [Concomitant]
     Route: 048
  10. DEFLAMAT [Concomitant]
     Route: 048

REACTIONS (2)
  - BREAST CANCER [None]
  - DRUG INEFFECTIVE [None]
